FAERS Safety Report 9005581 (Version 2)
Quarter: 2013Q1

REPORT INFORMATION
  Report Type: Spontaneous
  Country: CA (occurrence: CA)
  Receive Date: 20130109
  Receipt Date: 20130116
  Transmission Date: 20140127
  Serious: Yes (Other)
  Sender: FDA-Public Use
  Company Number: CA-PFIZER INC-2013002476

PATIENT
  Age: 4 Year
  Sex: Female

DRUGS (1)
  1. CHILDREN^S ADVIL [Suspect]
     Indication: PYREXIA
     Dosage: UNK
     Dates: start: 20121220, end: 20121220

REACTIONS (3)
  - Swelling face [Recovered/Resolved]
  - Lip swelling [Recovered/Resolved]
  - Eye swelling [Recovered/Resolved]
